FAERS Safety Report 10729858 (Version 3)
Quarter: 2017Q1

REPORT INFORMATION
  Report Type: Spontaneous
  Country: US (occurrence: US)
  Receive Date: 20150122
  Receipt Date: 20170321
  Transmission Date: 20170428
  Serious: No
  Sender: FDA-Public Use
  Company Number: US-CELGENEUS-USA-2015011218

PATIENT
  Age: 72 Year
  Sex: Female

DRUGS (1)
  1. OTEZLA [Suspect]
     Active Substance: APREMILAST
     Indication: PSORIASIS
     Dosage: 60 MILLIGRAM
     Route: 048
     Dates: start: 201412, end: 2016

REACTIONS (2)
  - Headache [Unknown]
  - Pruritus [Unknown]

NARRATIVE: CASE EVENT DATE: 201412
